FAERS Safety Report 9945760 (Version 1)
Quarter: 2014Q1

REPORT INFORMATION
  Report Type: Report from Study
  Country: US (occurrence: US)
  Receive Date: 20140303
  Receipt Date: 20140303
  Transmission Date: 20141002
  Serious: No
  Sender: FDA-Public Use
  Company Number: US-ABBVIE-13P-163-1049155-00

PATIENT
  Age: 30 Year
  Sex: Female

DRUGS (4)
  1. HUMIRA [Suspect]
     Indication: ANKYLOSING SPONDYLITIS
     Dates: start: 200902, end: 200911
  2. HUMIRA [Suspect]
     Dates: start: 201104
  3. NEXIUM [Concomitant]
     Indication: GASTROINTESTINAL ULCER
  4. MOTRIN [Concomitant]
     Indication: ANKYLOSING SPONDYLITIS

REACTIONS (10)
  - Lymphadenopathy [Unknown]
  - Ankylosing spondylitis [Unknown]
  - Fatigue [Unknown]
  - Oropharyngeal pain [Unknown]
  - Pain [Unknown]
  - Pyrexia [Unknown]
  - Chills [Unknown]
  - Pyrexia [Unknown]
  - Hyperhidrosis [Unknown]
  - Oropharyngeal pain [Unknown]
